FAERS Safety Report 5198053-9 (Version None)
Quarter: 2006Q4

REPORT INFORMATION
  Report Type: 
  Country: None (occurrence: None)
  Receive Date: 20061228
  Receipt Date: 20061220
  Transmission Date: 20070319
  Serious: Yes (Hospitalization)
  Sender: FDA-Public Use
  Company Number: 2006SP004451

PATIENT
  Age: 47 Year
  Sex: Female
  Weight: 79.3795 kg

DRUGS (1)
  1. LUNESTA [Suspect]
     Indication: INSOMNIA
     Dosage: 1 MG; 1X; ORAL
     Route: 048
     Dates: start: 20060323, end: 20060323

REACTIONS (3)
  - ANXIETY [None]
  - CARDIAC FAILURE CONGESTIVE [None]
  - HEADACHE [None]
